FAERS Safety Report 25217910 (Version 1)
Quarter: 2025Q2

REPORT INFORMATION
  Report Type: Spontaneous
  Country: GB (occurrence: GB)
  Receive Date: 20250421
  Receipt Date: 20250421
  Transmission Date: 20250716
  Serious: Yes (Hospitalization, Other)
  Sender: GLAXOSMITHKLINE
  Company Number: GB-GSK-GB2025EME044483

PATIENT

DRUGS (3)
  1. MOMELOTINIB [Suspect]
     Active Substance: MOMELOTINIB
     Indication: Myelofibrosis
  2. AMOXICILLIN [Suspect]
     Active Substance: AMOXICILLIN
     Indication: Escherichia infection
     Route: 042
  3. RUXOLITINIB [Suspect]
     Active Substance: RUXOLITINIB
     Indication: Primary myelofibrosis

REACTIONS (12)
  - Fall [Unknown]
  - Spinal fracture [Unknown]
  - Gastric ulcer [Recovered/Resolved]
  - Upper gastrointestinal haemorrhage [Unknown]
  - Diarrhoea [Recovering/Resolving]
  - Influenza A virus test positive [Unknown]
  - Contusion [Unknown]
  - Urinary tract infection [Unknown]
  - Oesophagitis [Unknown]
  - Hyperaemia [Unknown]
  - Anaemia [Unknown]
  - Compression fracture [Unknown]
